FAERS Safety Report 14046522 (Version 1)
Quarter: 2017Q4

REPORT INFORMATION
  Report Type: Spontaneous
  Country: IT (occurrence: IT)
  Receive Date: 20171005
  Receipt Date: 20171005
  Transmission Date: 20180321
  Serious: Yes (Other)
  Sender: FDA-Public Use
  Company Number: IT-ACCORD-059531

PATIENT
  Age: 23 Year
  Sex: Female

DRUGS (4)
  1. FENTANYL. [Suspect]
     Active Substance: FENTANYL
     Indication: GENERAL ANAESTHESIA
  2. SUXAMETHONIUM [Suspect]
     Active Substance: SUCCINYLCHOLINE
     Indication: GENERAL ANAESTHESIA
  3. PROPOFOL. [Suspect]
     Active Substance: PROPOFOL
     Indication: GENERAL ANAESTHESIA
  4. CISATRACURIUM/CISATRACURIUM BESILATE [Suspect]
     Active Substance: CISATRACURIUM BESYLATE
     Indication: GENERAL ANAESTHESIA
     Dosage: SINGLE BOLUS

REACTIONS (4)
  - Urticaria [Unknown]
  - Hypersensitivity [None]
  - Drug hypersensitivity [Unknown]
  - Hypotension [Recovered/Resolved]
